FAERS Safety Report 17424246 (Version 1)
Quarter: 2020Q1

REPORT INFORMATION
  Report Type: Report from Study
  Country: DE (occurrence: DE)
  Receive Date: 20200217
  Receipt Date: 20200217
  Transmission Date: 20200409
  Serious: Yes (Hospitalization, Other)
  Sender: FDA-Public Use
  Company Number: DE-UCBSA-2019032751

PATIENT
  Sex: Female

DRUGS (5)
  1. RIXATHON [Concomitant]
     Active Substance: RITUXIMAB
     Dosage: 1000 MILLIGRAM
     Dates: start: 20180217
  2. MABTHERA [Concomitant]
     Active Substance: RITUXIMAB
     Indication: PRODUCT USED FOR UNKNOWN INDICATION
  3. RIXATHON [Concomitant]
     Active Substance: RITUXIMAB
     Indication: PRODUCT USED FOR UNKNOWN INDICATION
     Dosage: 1000 MILLIGRAM
     Dates: start: 20180216
  4. CERTOLIZUMAB PEGOL RA [Suspect]
     Active Substance: CERTOLIZUMAB PEGOL
     Indication: RHEUMATOID ARTHRITIS
     Dosage: 200 MILLIGRAM, EV 2 WEEKS(QOW)
     Dates: start: 201501, end: 201802
  5. MTX [METHOTREXATE] [Concomitant]
     Active Substance: METHOTREXATE SODIUM
     Indication: PRODUCT USED FOR UNKNOWN INDICATION
     Dosage: 7.5 MILLIGRAM, WEEKLY (QW)
     Dates: start: 201802

REACTIONS (3)
  - Rheumatoid arthritis [Unknown]
  - Keratitis [Unknown]
  - Scleritis [Unknown]

NARRATIVE: CASE EVENT DATE: 201801
